FAERS Safety Report 13739153 (Version 1)
Quarter: 2017Q3

REPORT INFORMATION
  Report Type: Report from Study
  Country: US (occurrence: US)
  Receive Date: 20170710
  Receipt Date: 20170710
  Transmission Date: 20171127
  Serious: No
  Sender: FDA-Public Use
  Company Number: US-SAOL THERAPEUTICS-2017SAO00632

PATIENT
  Age: 40 Year
  Sex: Female

DRUGS (31)
  1. COMPOUNDED BACLOFEN [Suspect]
     Active Substance: BACLOFEN
     Dosage: 350.41 ?G, \DAY
     Route: 037
     Dates: start: 20091001, end: 20091030
  2. COMPOUNDED BACLOFEN [Suspect]
     Active Substance: BACLOFEN
     Dosage: 662.72 ?G, \DAY
     Route: 037
     Dates: start: 20100729
  3. BUPIVACAINE. [Suspect]
     Active Substance: BUPIVACAINE
     Dosage: 42.511 MG, \DAY
     Route: 037
     Dates: start: 20100729
  4. CLONIDINE. [Suspect]
     Active Substance: CLONIDINE
     Dosage: 206.71 ?G, \DAY
     Route: 037
  5. DROPERIDOL. [Suspect]
     Active Substance: DROPERIDOL
     Dosage: 68.82 ?G, \DAY
     Route: 037
     Dates: start: 20100825
  6. DILAUDID [Suspect]
     Active Substance: HYDROMORPHONE HYDROCHLORIDE
     Dosage: 2.803 MG, \DAY
     Route: 037
     Dates: start: 20091001, end: 20091030
  7. BUPIVACAINE. [Suspect]
     Active Substance: BUPIVACAINE
     Dosage: 22.024 MG, \DAY
     Route: 037
     Dates: start: 20100825
  8. CLONIDINE. [Suspect]
     Active Substance: CLONIDINE
     Dosage: 137.44 ?G, \DAY
     Route: 037
     Dates: start: 20091030
  9. DILAUDID [Suspect]
     Active Substance: HYDROMORPHONE HYDROCHLORIDE
     Dosage: 2.249 MG, \DAY
     Route: 037
     Dates: start: 20091001, end: 20091030
  10. DILAUDID [Suspect]
     Active Substance: HYDROMORPHONE HYDROCHLORIDE
     Dosage: 2.748 MG, \DAY
     Route: 037
     Dates: start: 20091030
  11. BUPIVACAINE. [Suspect]
     Active Substance: BUPIVACAINE
     Dosage: 53.018 MG, \DAY
     Route: 037
     Dates: start: 20100729
  12. CLONIDINE. [Suspect]
     Active Substance: CLONIDINE
     Dosage: 212.55 ?G, \DAY
     Route: 037
     Dates: start: 20100729
  13. CLONIDINE. [Suspect]
     Active Substance: CLONIDINE
     Dosage: 220.24 ?G, \DAY
     Route: 037
     Dates: start: 20100825
  14. COMPOUNDED BACLOFEN [Suspect]
     Active Substance: BACLOFEN
     Dosage: 516.77 ?G, \DAY
     Route: 037
     Dates: start: 20091030
  15. DILAUDID [Suspect]
     Active Substance: HYDROMORPHONE HYDROCHLORIDE
     Dosage: 4.2511 MG, \DAY
     Route: 037
     Dates: start: 20100729
  16. DILAUDID [Suspect]
     Active Substance: HYDROMORPHONE HYDROCHLORIDE
     Dosage: 3.303 MG, \DAY
     Route: 037
     Dates: start: 20100825
  17. CLONIDINE. [Suspect]
     Active Substance: CLONIDINE
     Dosage: 112.49 ?G, \DAY
     Route: 037
     Dates: start: 20091001
  18. DROPERIDOL. [Suspect]
     Active Substance: DROPERIDOL
     Dosage: 165.68 ?G, \DAY
     Route: 037
     Dates: start: 20100729
  19. COMPOUNDED BACLOFEN [Suspect]
     Active Substance: BACLOFEN
     Dosage: 531.39 ?G, \DAY
     Route: 037
     Dates: start: 20100729
  20. COMPOUNDED BACLOFEN [Suspect]
     Active Substance: BACLOFEN
     Dosage: 440.47 ?G, \DAY
     Route: 037
     Dates: start: 20100825
  21. DILAUDID [Suspect]
     Active Substance: HYDROMORPHONE HYDROCHLORIDE
     Dosage: 5.3018 MG, \DAY
     Route: 037
     Dates: start: 20100729
  22. BUPIVACAINE. [Suspect]
     Active Substance: BUPIVACAINE
     Dosage: 28.033 MG, \DAY
     Route: 037
     Dates: start: 20091001, end: 20091030
  23. BUPIVACAINE. [Suspect]
     Active Substance: BUPIVACAINE
     Dosage: 27.488 MG, \DAY
     Route: 037
     Dates: start: 20091030
  24. CLONIDINE. [Suspect]
     Active Substance: CLONIDINE
     Dosage: 140.16 ?G, \DAY
     Dates: start: 20091001
  25. CLONIDINE. [Suspect]
     Active Substance: CLONIDINE
     Dosage: 265.09 ?G, \DAY
     Route: 037
     Dates: start: 20100729
  26. DROPERIDOL. [Suspect]
     Active Substance: DROPERIDOL
     Dosage: 132.85 ?G, \DAY
     Route: 037
     Dates: start: 20100729
  27. COMPOUNDED BACLOFEN [Suspect]
     Active Substance: BACLOFEN
     Dosage: 343.6 ?G, \DAY
     Route: 037
     Dates: start: 20091030
  28. BUPIVACAINE. [Suspect]
     Active Substance: BUPIVACAINE
     Dosage: 41.342 MG, \DAY
     Route: 037
     Dates: start: 20091030
  29. COMPOUNDED BACLOFEN [Suspect]
     Active Substance: BACLOFEN
     Dosage: 281.23 ?G, \DAY
     Route: 037
     Dates: start: 20091001, end: 20091030
  30. DILAUDID [Suspect]
     Active Substance: HYDROMORPHONE HYDROCHLORIDE
     Dosage: 4.134 MG, \DAY
     Route: 037
     Dates: start: 20091030
  31. BUPIVACAINE. [Suspect]
     Active Substance: BUPIVACAINE
     Dosage: 22.498 MG, \DAY
     Route: 037
     Dates: start: 20091001, end: 20091030

REACTIONS (2)
  - Swelling [Recovered/Resolved]
  - Hypoaesthesia [Recovered/Resolved]

NARRATIVE: CASE EVENT DATE: 20100408
